FAERS Safety Report 22134580 (Version 1)
Quarter: 2023Q1

REPORT INFORMATION
  Report Type: Spontaneous
  Country: JP (occurrence: JP)
  Receive Date: 20230324
  Receipt Date: 20230324
  Transmission Date: 20230418
  Serious: Yes (Death, Hospitalization)
  Sender: FDA-Public Use
  Company Number: JP-MYLANLABS-2023M1030839

PATIENT
  Age: 30 Year
  Sex: Female

DRUGS (19)
  1. CARBOPLATIN [Suspect]
     Active Substance: CARBOPLATIN
     Indication: Breast angiosarcoma metastatic
     Dosage: 30 MILLIGRAM, FIRST INFUSION, INTRAVENOUS INFUSION
     Route: 042
  2. CARBOPLATIN [Suspect]
     Active Substance: CARBOPLATIN
     Indication: Metastases to liver
  3. EPIRUBICIN [Suspect]
     Active Substance: EPIRUBICIN
     Indication: Breast angiosarcoma metastatic
     Dosage: 20 MILLIGRAM, SECOND AND THIRD INFUSIONS, INTRAVENOUS INFUSION
     Route: 042
  4. EPIRUBICIN [Suspect]
     Active Substance: EPIRUBICIN
     Indication: Metastases to liver
  5. PACLITAXEL [Suspect]
     Active Substance: PACLITAXEL
     Indication: Breast angiosarcoma metastatic
     Dosage: 75 MILLIGRAM/SQ. METER, WEEKLY FOR 12 CYCLES
     Route: 042
  6. DOXORUBICIN [Suspect]
     Active Substance: DOXORUBICIN
     Indication: Breast angiosarcoma metastatic
     Dosage: 60 MILLIGRAM/SQ. METER
     Route: 065
  7. DOXORUBICIN [Suspect]
     Active Substance: DOXORUBICIN
     Indication: Metastases to liver
  8. FLUOROURACIL [Suspect]
     Active Substance: FLUOROURACIL
     Indication: Breast angiosarcoma metastatic
     Dosage: 250 MILLIGRAM, FIRST INFUSION, INTRAVENOUS INFUSION
     Route: 042
  9. FLUOROURACIL [Suspect]
     Active Substance: FLUOROURACIL
     Indication: Metastases to liver
     Dosage: 250 MILLIGRAM, SECOND AND THIRD INFUSIONS , INTRAVENOUS INFUSION
     Route: 042
  10. ADRIAMYCIN [Suspect]
     Active Substance: DOXORUBICIN HYDROCHLORIDE
     Indication: Breast angiosarcoma metastatic
     Dosage: 20 MILLIGRAM, FIRST INFUSION , INTRAVENOUS INFUSION
     Route: 042
  11. ADRIAMYCIN [Suspect]
     Active Substance: DOXORUBICIN HYDROCHLORIDE
     Indication: Metastases to liver
  12. DOCETAXEL [Suspect]
     Active Substance: DOCETAXEL
     Indication: Breast angiosarcoma metastatic
     Dosage: 20 MILLIGRAM, SECOND AND THIRD INFUSIONS, INTRAVENOUS INFUSION
     Route: 042
  13. DOCETAXEL [Suspect]
     Active Substance: DOCETAXEL
     Indication: Metastases to liver
  14. CISPLATIN [Suspect]
     Active Substance: CISPLATIN
     Indication: Breast angiosarcoma metastatic
     Dosage: 20 MILLIGRAM, SECOND AND THIRD INFUSIONS, INTRAVENOUS INFUSION
     Route: 042
  15. CISPLATIN [Suspect]
     Active Substance: CISPLATIN
     Indication: Metastases to liver
  16. ERIBULIN [Suspect]
     Active Substance: ERIBULIN
     Indication: Breast angiosarcoma metastatic
     Dosage: 1 MILLIGRAM/SQ. METER, SECOND AND THIRD INFUSIONS
     Route: 042
  17. ERIBULIN [Suspect]
     Active Substance: ERIBULIN
     Indication: Metastases to liver
  18. BEVACIZUMAB [Suspect]
     Active Substance: BEVACIZUMAB
     Indication: Breast angiosarcoma metastatic
     Dosage: 100 MILLIGRAM,FIRST INFUSION, INTRAVENOUS INFUSION
     Route: 042
  19. BEVACIZUMAB [Suspect]
     Active Substance: BEVACIZUMAB
     Indication: Metastases to liver
     Dosage: 200 MILLIGRAM, SECOND AND THIRD INFUSIONS, INTRAVENOUS INFUSION
     Route: 042

REACTIONS (1)
  - Drug ineffective [Fatal]
